FAERS Safety Report 9101702 (Version 1)
Quarter: 2013Q1

REPORT INFORMATION
  Report Type: Spontaneous
  Country: JP (occurrence: JP)
  Receive Date: 20130218
  Receipt Date: 20130218
  Transmission Date: 20140127
  Serious: Yes (Other)
  Sender: FDA-Public Use
  Company Number: JP-ASTRAZENECA-2013SE09942

PATIENT
  Sex: Female

DRUGS (9)
  1. SEROQUEL [Suspect]
     Indication: DEMENTIA
     Route: 048
  2. ARICEPT [Suspect]
     Route: 048
  3. YOKUKAN-SAN [Suspect]
     Route: 048
     Dates: start: 20100320, end: 20101006
  4. BI SIFROL [Suspect]
     Route: 048
  5. MADOPAR [Suspect]
     Route: 048
  6. COMTAN [Suspect]
     Route: 048
  7. AZOLITAN [Suspect]
     Route: 048
  8. PREMINENT [Concomitant]
  9. AMLODIPINE [Concomitant]

REACTIONS (3)
  - Pseudoaldosteronism [Unknown]
  - Constipation [Unknown]
  - Off label use [Unknown]
